FAERS Safety Report 5797285-6 (Version None)
Quarter: 2008Q2

REPORT INFORMATION
  Report Type: 
  Country: None (occurrence: None)
  Receive Date: 20080627
  Receipt Date: 20080616
  Transmission Date: 20081010
  Serious: Yes (Hospitalization)
  Sender: FDA-Public Use
  Company Number: 2008-179405-NL

PATIENT
  Age: 80 Year
  Sex: Male

DRUGS (17)
  1. DANAPAROID SODIUM [Suspect]
     Dosage: SUBCUTANEOUS
     Route: 058
     Dates: start: 20080408, end: 20080426
  2. ACETYLSALICYLATE LYSINE [Suspect]
     Dosage: 75 MG ORAL
     Route: 048
     Dates: start: 20080423
  3. WARFARIN SODIUM [Suspect]
     Dosage: ORAL
     Route: 048
     Dates: start: 20080423
  4. POTASSIUM CHLORIDE [Suspect]
     Indication: HYPOKALAEMIA
     Dosage: ORAL
     Route: 048
     Dates: start: 20080415, end: 20080423
  5. CLOPIDOGREL BISULFATE [Concomitant]
  6. IRBESARTAN [Concomitant]
  7. NITRENDIPINE [Concomitant]
  8. FLUVASTATIN [Concomitant]
  9. LOPERAMIDE OXIDE [Concomitant]
  10. SMECTITE [Concomitant]
  11. ESOMEPRAZOLE MAGNESIUM [Concomitant]
  12. SYMBICORT [Concomitant]
  13. ACETAMINOPHEN [Concomitant]
  14. FLUVASTATIN [Concomitant]
  15. TAMSULOSIN HCL [Concomitant]
  16. KETOPROFEN [Concomitant]
  17. ACETAMINOPHEN [Concomitant]

REACTIONS (5)
  - COLITIS ULCERATIVE [None]
  - HYPOKALAEMIA [None]
  - INFLAMMATION [None]
  - RECTAL HAEMORRHAGE [None]
  - SPLENECTOMY [None]
